FAERS Safety Report 7224058 (Version 7)
Quarter: 2012Q4

REPORT INFORMATION
  Report Type: 
  Country: CA (occurrence: CA)
  Receive Date: 20091221
  Receipt Date: 20121107
  Transmission Date: 20130627
  Serious: Yes (Hospitalization, Other)
  Sender: FDA-Public Use
  Company Number: PHHY2009CA25987

PATIENT
  Sex: Male

DRUGS (3)
  1. SANDOSTATIN LAR [Suspect]
     Indication: NEUROENDOCRINE TUMOUR
     Dosage: 60 mg every 4 weeks
     Route: 030
     Dates: start: 20090330
  2. SANDOSTATIN [Suspect]
     Route: 058
  3. CHEMOTHERAPEUTICS NOS [Concomitant]

REACTIONS (10)
  - Tricuspid valve incompetence [Unknown]
  - Intracardiac thrombus [Unknown]
  - Cardiac valve disease [Unknown]
  - Hepatic lesion [Unknown]
  - Syncope [Unknown]
  - General physical health deterioration [Unknown]
  - Oedema peripheral [Unknown]
  - Arthralgia [Unknown]
  - Flatulence [Unknown]
  - Abdominal distension [Unknown]
